FAERS Safety Report 13468530 (Version 1)
Quarter: 2017Q2

REPORT INFORMATION
  Report Type: Spontaneous
  Country: US (occurrence: US)
  Receive Date: 20170421
  Receipt Date: 20170421
  Transmission Date: 20170830
  Serious: Yes (Other)
  Sender: FDA-Public Use
  Company Number: US-PFIZER INC-2017170550

PATIENT
  Age: 49 Year
  Sex: Female
  Weight: 110 kg

DRUGS (4)
  1. LYRICA [Suspect]
     Active Substance: PREGABALIN
     Indication: RADIOTHERAPY
     Dosage: 300 MG, EVERY FOUR OR 5 HOURS
     Route: 048
     Dates: start: 20170321, end: 20170328
  2. LYRICA [Suspect]
     Active Substance: PREGABALIN
     Indication: NEOPLASM MALIGNANT
  3. FENTANYL. [Concomitant]
     Active Substance: FENTANYL
     Indication: CANCER PAIN
     Dosage: TWO 75MG PATCHES; CHANGE EVERY THREE DAYS
     Route: 062
     Dates: start: 201606
  4. OXYCODONE [Concomitant]
     Active Substance: OXYCODONE
     Indication: CANCER PAIN
     Dosage: 180 MG, DAILY 30 MG 6 TABLETS A DAY
     Dates: start: 201605

REACTIONS (9)
  - Abasia [Not Recovered/Not Resolved]
  - Somnolence [Not Recovered/Not Resolved]
  - Paraesthesia [Not Recovered/Not Resolved]
  - Fall [Unknown]
  - Product use in unapproved indication [Unknown]
  - Peripheral swelling [Not Recovered/Not Resolved]
  - Prescribed overdose [Unknown]
  - Brain neoplasm malignant [Unknown]
  - Asthenia [Not Recovered/Not Resolved]

NARRATIVE: CASE EVENT DATE: 20170321
